FAERS Safety Report 4749181-0 (Version None)
Quarter: 2005Q3

REPORT INFORMATION
  Report Type: 
  Country: None (occurrence: None)
  Receive Date: 20050817
  Receipt Date: 20050804
  Transmission Date: 20060218
  Serious: Yes (Life-Threatening)
  Sender: FDA-Public Use
  Company Number: 200510381BYL

PATIENT
  Age: 63 Year
  Sex: Male

DRUGS (3)
  1. ADALAT [Suspect]
     Dosage: 40 MG, TOTAL DAILY, ORAL
     Route: 048
  2. DIOVAN [Suspect]
     Dosage: ORAL
     Route: 048
  3. OMEPRAZOLE [Suspect]
     Dosage: ORAL
     Route: 048

REACTIONS (2)
  - INTERSTITIAL LUNG DISEASE [None]
  - WHITE BLOOD CELL COUNT DECREASED [None]
